FAERS Safety Report 19078660 (Version 1)
Quarter: 2021Q1

REPORT INFORMATION
  Report Type: Spontaneous
  Country: US (occurrence: US)
  Receive Date: 20210331
  Receipt Date: 20210331
  Transmission Date: 20210420
  Serious: Yes (Death, Hospitalization)
  Sender: FDA-Public Use
  Company Number: US-BAYER-2021-113426

PATIENT
  Sex: Male

DRUGS (2)
  1. REGORAFENIB. [Suspect]
     Active Substance: REGORAFENIB
     Indication: COLON CANCER METASTATIC
     Dosage: UNK
     Route: 048
  2. CARVEDILOL. [Concomitant]
     Active Substance: CARVEDILOL
     Indication: HYPERTENSION
     Dosage: 3.125 MG, BID

REACTIONS (14)
  - Acute kidney injury [Recovering/Resolving]
  - Pneumonia [None]
  - Generalised oedema [None]
  - Pulmonary oedema [None]
  - Effusion [None]
  - Atelectasis [None]
  - Respiratory failure [None]
  - Death [Fatal]
  - Glomerulonephritis proliferative [Recovering/Resolving]
  - Oedema peripheral [None]
  - Proteinuria [None]
  - Haematuria [None]
  - Metastases to lung [None]
  - Rash macular [None]
